FAERS Safety Report 7641822-3 (Version None)
Quarter: 2011Q3

REPORT INFORMATION
  Report Type: 
  Country: None (occurrence: None)
  Receive Date: 20110728
  Receipt Date: 20110714
  Transmission Date: 20111222
  Serious: Yes (Other)
  Sender: FDA-Public Use
  Company Number: GB-ROCHE-789738

PATIENT
  Age: 46 Year
  Sex: Male

DRUGS (5)
  1. CLOZAPINE [Suspect]
     Route: 048
     Dates: start: 20100913, end: 20110224
  2. RIBAVIRIN [Suspect]
     Route: 065
  3. CLOZAPINE [Suspect]
     Route: 048
     Dates: start: 20110307, end: 20110701
  4. OLANZAPINE [Suspect]
     Route: 065
  5. PEGINTERFERON ALFA-2A [Suspect]
     Route: 065

REACTIONS (8)
  - NEUTROPHIL COUNT DECREASED [None]
  - WHITE BLOOD CELL COUNT DECREASED [None]
  - HEPATIC CIRRHOSIS [None]
  - HEPATITIS C [None]
  - LEUKOPENIA [None]
  - MEDICATION ERROR [None]
  - THROMBOCYTOPENIA [None]
  - NEUTROPENIA [None]
